FAERS Safety Report 9668127 (Version 1)
Quarter: 2013Q4

REPORT INFORMATION
  Report Type: Spontaneous
  Country: US (occurrence: None)
  Receive Date: 20131101
  Receipt Date: 20131101
  Transmission Date: 20140711
  Serious: Yes (Other)
  Sender: FDA-Public Use
  Company Number: 2013P1020420

PATIENT
  Age: 31 Year
  Sex: Male
  Weight: 75.9 kg

DRUGS (11)
  1. CHLORPROMAZINE [Suspect]
     Indication: OBSESSIVE-COMPULSIVE DISORDER
  2. RISPERIDONE [Suspect]
     Indication: AUTISM SPECTRUM DISORDER
     Dosage: 2 TO 4 MG; HS
  3. CLOMIPRAMINE [Suspect]
     Indication: OBSESSIVE-COMPULSIVE DISORDER
  4. QUETIAPINE [Concomitant]
  5. ATENOLOL [Concomitant]
  6. DIVALPROEX SODIUM [Concomitant]
  7. DOCUSATE [Concomitant]
  8. GLATIRAMER [Concomitant]
  9. HYDROCHLOROTHIAZIDE [Concomitant]
  10. MECLIZINE [Concomitant]
  11. DAILY MULTIVITAMIN [Concomitant]

REACTIONS (7)
  - Sexually inappropriate behaviour [None]
  - Aggression [None]
  - Ataxia [None]
  - Drug ineffective [None]
  - Posture abnormal [None]
  - Pleurothotonus [None]
  - Drug interaction [None]
